FAERS Safety Report 5071036-5 (Version None)
Quarter: 2006Q3

REPORT INFORMATION
  Report Type: 
  Country: None (occurrence: None)
  Receive Date: 20060804
  Receipt Date: 20060104
  Transmission Date: 20061208
  Serious: No
  Sender: FDA-Public Use
  Company Number: US-GLAXOSMITHKLINE-A0587704A

PATIENT
  Age: 49 Year
  Sex: Male

DRUGS (1)
  1. NICORETTE [Suspect]
     Dates: start: 20051229

REACTIONS (2)
  - HYPERCHLORHYDRIA [None]
  - PHARYNGOLARYNGEAL PAIN [None]
